FAERS Safety Report 13765358 (Version 3)
Quarter: 2018Q4

REPORT INFORMATION
  Report Type: Report from Study
  Country: US (occurrence: US)
  Receive Date: 20170718
  Receipt Date: 20181224
  Transmission Date: 20190204
  Serious: No
  Sender: FDA-Public Use
  Company Number: PHHY2015US005585

PATIENT
  Age: 59 Year
  Sex: Male

DRUGS (1)
  1. GILENYA [Suspect]
     Active Substance: FINGOLIMOD HYDROCHLORIDE
     Indication: MULTIPLE SCLEROSIS
     Dosage: UNK, QD
     Route: 048

REACTIONS (6)
  - Upper respiratory tract infection [Recovered/Resolved]
  - Alopecia [Unknown]
  - Abdominal pain [Recovered/Resolved]
  - Pharyngitis streptococcal [Recovered/Resolved]
  - Hypertension [Unknown]
  - Flatulence [Unknown]

NARRATIVE: CASE EVENT DATE: 20141001
